FAERS Safety Report 23849462 (Version 1)
Quarter: 2024Q2

REPORT INFORMATION
  Report Type: Spontaneous
  Country: US (occurrence: None)
  Receive Date: 20240512
  Receipt Date: 20240512
  Transmission Date: 20240715
  Serious: Yes (Hospitalization)
  Sender: FDA-Public Use
  Company Number: None

PATIENT
  Age: 74 Year
  Sex: Male

DRUGS (2)
  1. NAPROXEN [Suspect]
     Active Substance: NAPROXEN
     Indication: Pain
     Dosage: PO
     Route: 048
     Dates: start: 20200715, end: 20200807
  2. NAPROXEN [Suspect]
     Active Substance: NAPROXEN
     Indication: Epicondylitis

REACTIONS (1)
  - Rash [None]

NARRATIVE: CASE EVENT DATE: 20200805
